FAERS Safety Report 17261534 (Version 3)
Quarter: 2020Q1

REPORT INFORMATION
  Report Type: Spontaneous
  Country: US (occurrence: US)
  Receive Date: 20200113
  Receipt Date: 20200302
  Transmission Date: 20200409
  Serious: No
  Sender: FDA-Public Use
  Company Number: US-ASTRAZENECA-2020SE03970

PATIENT
  Age: 27891 Day
  Sex: Female
  Weight: 70.3 kg

DRUGS (2)
  1. SYMBICORT [Suspect]
     Active Substance: BUDESONIDE\FORMOTEROL FUMARATE DIHYDRATE
     Indication: ASTHMA
     Dosage: 160/4.5 2 PUFFS 2 TIMES A DAY
     Route: 055
  2. PREDNISONE. [Concomitant]
     Active Substance: PREDNISONE
     Route: 065

REACTIONS (8)
  - Frustration tolerance decreased [Unknown]
  - Product dose omission [Unknown]
  - Device malfunction [Unknown]
  - Malaise [Recovering/Resolving]
  - Fatigue [Unknown]
  - Intentional product misuse [Unknown]
  - Asthma [Unknown]
  - Device issue [Unknown]

NARRATIVE: CASE EVENT DATE: 20200106
